FAERS Safety Report 6361944-7 (Version None)
Quarter: 2009Q3

REPORT INFORMATION
  Report Type: 
  Country: None (occurrence: None)
  Receive Date: 20090918
  Receipt Date: 20090911
  Transmission Date: 20100115
  Serious: No
  Sender: FDA-Public Use
  Company Number: B0593509A

PATIENT
  Age: 13 Year
  Sex: Male

DRUGS (1)
  1. RELENZA [Suspect]
     Indication: INFLUENZA
     Dosage: 20ML PER DAY
     Route: 055
     Dates: start: 20090901

REACTIONS (2)
  - NO ADVERSE EVENT [None]
  - OVERDOSE [None]
